FAERS Safety Report 21191135 (Version 2)
Quarter: 2022Q3

REPORT INFORMATION
  Report Type: Spontaneous
  Country: JP (occurrence: JP)
  Receive Date: 20220809
  Receipt Date: 20220901
  Transmission Date: 20221026
  Serious: Yes (Other)
  Sender: FDA-Public Use
  Company Number: JP-ONO-2022JP021560

PATIENT
  Age: 73 Year
  Sex: Male
  Weight: 54.7 kg

DRUGS (28)
  1. OPDIVO [Suspect]
     Active Substance: NIVOLUMAB
     Indication: Gastric cancer
     Dosage: 240 MG, Q2W
     Route: 042
     Dates: start: 20220117, end: 20220404
  2. OXALIPLATIN [Suspect]
     Active Substance: OXALIPLATIN
     Indication: Gastric cancer
     Dosage: 165 MG, Q3W
     Route: 041
     Dates: start: 20210713, end: 20210912
  3. OXALIPLATIN [Suspect]
     Active Substance: OXALIPLATIN
     Dosage: 125 MG, Q3W
     Route: 041
     Dates: start: 20211220, end: 20220109
  4. OXALIPLATIN [Suspect]
     Active Substance: OXALIPLATIN
     Dosage: 145 MG, Q3W
     Route: 041
     Dates: end: 20211205
  5. ANAMORELIN HYDROCHLORIDE [Suspect]
     Active Substance: ANAMORELIN HYDROCHLORIDE
     Indication: Cachexia
     Dosage: 100 MG, EVERYDAY
     Route: 048
     Dates: start: 20210702
  6. APREPITANT [Suspect]
     Active Substance: APREPITANT
     Indication: Prophylaxis of nausea and vomiting
     Dosage: 80 MG X 2 DAYS/3 WEEKS, LAST ADMINISTRATION DATE: 2022/01/09
     Route: 048
     Dates: end: 20220109
  7. APREPITANT [Suspect]
     Active Substance: APREPITANT
     Dosage: 125 MG, Q3W, LAST ADMINISTRATION DATE: 2022/01/09
     Route: 048
     Dates: end: 20220109
  8. ENHERTU [Suspect]
     Active Substance: FAM-TRASTUZUMAB DERUXTECAN-NXKI
     Indication: Gastric cancer
     Dosage: 390 MG, Q3W
     Route: 041
     Dates: start: 20220412
  9. CAPECITABINE [Concomitant]
     Active Substance: CAPECITABINE
     Indication: Gastric cancer
     Dosage: 2,400 MG/DAY (DAY 1-15), LAST ADMINISTRATION DATE: 2022/01/09
     Route: 048
     Dates: end: 20220109
  10. HERCEPTIN [Concomitant]
     Active Substance: TRASTUZUMAB
     Indication: Gastric cancer
     Dosage: 430.5 MG
     Route: 065
     Dates: start: 20210713, end: 20210713
  11. HERCEPTIN [Concomitant]
     Active Substance: TRASTUZUMAB
     Dosage: 340.2 MG, Q3W
     Route: 065
     Dates: start: 20210802, end: 20220109
  12. GRANISETRON [Concomitant]
     Active Substance: GRANISETRON
     Indication: Prophylaxis
     Dosage: 3 MG, Q3W
     Route: 041
     Dates: start: 20220412
  13. GRANISETRON [Concomitant]
     Active Substance: GRANISETRON
     Indication: Chemotherapy side effect prophylaxis
     Dosage: 3 MG, Q3W, LAST ADMINISTRATION DATE:2022/01/09
     Route: 041
     Dates: end: 20220109
  14. DEXAMETHASONE SODIUM PHOSPHATE [Concomitant]
     Active Substance: DEXAMETHASONE SODIUM PHOSPHATE
     Indication: Prophylaxis
     Dosage: 6.6 MG, Q3W
     Route: 065
     Dates: start: 20220412
  15. DEXAMETHASONE SODIUM PHOSPHATE [Concomitant]
     Active Substance: DEXAMETHASONE SODIUM PHOSPHATE
     Indication: Chemotherapy side effect prophylaxis
     Dosage: 8.25 MG, Q3W, LAST ADMINISTRATION DATE:2022/01/09
     Route: 065
     Dates: end: 20220109
  16. HEPARINOID [Concomitant]
     Indication: Product used for unknown indication
     Dosage: OPTIMAL DOSE, EVERYDAY
     Route: 061
  17. MAGNESIUM OXIDE [Concomitant]
     Active Substance: MAGNESIUM OXIDE
     Indication: Product used for unknown indication
     Dosage: 1980 MG, EVERYDAY
     Route: 048
     Dates: start: 20210714, end: 20210822
  18. PROBENECID [Concomitant]
     Active Substance: PROBENECID
     Indication: Product used for unknown indication
     Dosage: 250 MG, EVERYDAY
     Route: 048
  19. FERROUS SULFATE [Concomitant]
     Active Substance: FERROUS SULFATE
     Indication: Product used for unknown indication
     Dosage: 105 MG, EVERYDAY
     Route: 048
  20. LOPERAMIDE [Concomitant]
     Active Substance: LOPERAMIDE
     Indication: Prophylaxis
     Dosage: 2 MG, EVERYDAY
     Route: 048
     Dates: start: 20211004, end: 20220130
  21. LOPERAMIDE [Concomitant]
     Active Substance: LOPERAMIDE
     Indication: Chemotherapy side effect prophylaxis
     Dosage: 1 MG, AT THE TIME OF DIARRHOEA
     Route: 048
     Dates: start: 20220530
  22. LOPERAMIDE [Concomitant]
     Active Substance: LOPERAMIDE
     Dosage: 1 MG, AT THE TIME OF DIARRHOEA, LAST ADMINISTRATION DATE:2021/10/03
     Route: 048
     Dates: end: 20211003
  23. PATANOL [Concomitant]
     Active Substance: OLOPATADINE HYDROCHLORIDE
     Indication: Product used for unknown indication
     Dosage: 8 GTT, EVERYDAY
     Route: 047
  24. METOCLOPRAMIDE [Concomitant]
     Active Substance: METOCLOPRAMIDE
     Indication: Prophylaxis
     Dosage: 5 MG, AT THE TIME OF QUEASY
     Route: 048
     Dates: start: 20220412
  25. ROSUVASTATIN [Concomitant]
     Active Substance: ROSUVASTATIN
     Indication: Product used for unknown indication
     Dosage: 2.5 MG, EVERYDAY
     Route: 048
  26. DECADRON [Concomitant]
     Active Substance: DEXAMETHASONE
     Indication: Prophylaxis
     Dosage: 4 MG X 2 DAYS/3 WEEKS, LAST ADMINISTRATION DATE:2022/01/09
     Route: 048
  27. DECADRON [Concomitant]
     Active Substance: DEXAMETHASONE
     Indication: Chemotherapy side effect prophylaxis
     Dosage: 8 MG X 2 DAYS/3 WEEKS
     Route: 048
     Dates: start: 20220412
  28. MYSER [Concomitant]
     Indication: Product used for unknown indication
     Dosage: OPTIMAL DOSE, EVERYDAY
     Route: 061
     Dates: start: 20220302, end: 20220529

REACTIONS (2)
  - Neuropathy peripheral [Not Recovered/Not Resolved]
  - Tinea pedis [Recovering/Resolving]

NARRATIVE: CASE EVENT DATE: 20211206
